FAERS Safety Report 16429679 (Version 8)
Quarter: 2019Q4

REPORT INFORMATION
  Report Type: Report from Study
  Country: None (occurrence: FR)
  Receive Date: 20190614
  Receipt Date: 20191121
  Transmission Date: 20200122
  Serious: Yes (Hospitalization)
  Sender: FDA-Public Use
  Company Number: FR-ABBVIE-19S-056-2820385-00

PATIENT
  Sex: Female

DRUGS (1)
  1. DUODOPA [Suspect]
     Active Substance: CARBIDOPA\LEVODOPA
     Indication: PARKINSON^S DISEASE
     Dosage: DOSE CHANGED TO 5.5 MG/HOURS PRESCRIBED AT 11:00 AM
     Route: 050
     Dates: start: 20190417

REACTIONS (9)
  - General physical health deterioration [Unknown]
  - Rib fracture [Unknown]
  - Aggression [Unknown]
  - Anxiety [Unknown]
  - Mental disorder [Unknown]
  - Facial bones fracture [Unknown]
  - Delirium [Unknown]
  - Fall [Recovered/Resolved]
  - Device issue [Unknown]

NARRATIVE: CASE EVENT DATE: 2019
